FAERS Safety Report 12401271 (Version 3)
Quarter: 2017Q3

REPORT INFORMATION
  Report Type: Spontaneous
  Country: US (occurrence: US)
  Receive Date: 20160525
  Receipt Date: 20170814
  Transmission Date: 20171127
  Serious: Yes (Hospitalization, Other)
  Sender: FDA-Public Use
  Company Number: US-AUROBINDO-AUR-APL-2016-06483

PATIENT
  Age: 81 Year
  Sex: Female

DRUGS (12)
  1. OLMESARTAN [Concomitant]
     Active Substance: OLMESARTAN
     Indication: PRODUCT USED FOR UNKNOWN INDICATION
  2. ACETAMINOPHEN W/PROPOXYPHENE [Concomitant]
     Active Substance: ACETAMINOPHEN\PROPOXYPHENE
     Indication: PRODUCT USED FOR UNKNOWN INDICATION
  3. IOHEXOL                            /05713801/ [Concomitant]
     Active Substance: IOHEXOL
     Indication: PRODUCT USED FOR UNKNOWN INDICATION
     Route: 008
  4. NORMAL SALINE [Concomitant]
     Active Substance: SODIUM CHLORIDE
     Indication: PRODUCT USED FOR UNKNOWN INDICATION
     Route: 008
  5. CLOPIDOGREL [Suspect]
     Active Substance: CLOPIDOGREL BISULFATE
     Indication: TRANSIENT ISCHAEMIC ATTACK
     Dosage: 75 MG, DAILY
     Route: 065
  6. KETOROLAC [Suspect]
     Active Substance: KETOROLAC\KETOROLAC TROMETHAMINE
     Indication: PAIN
     Dosage: 30 MG, UNK
     Route: 030
  7. LIDOCAINE. [Concomitant]
     Active Substance: LIDOCAINE
     Indication: ANAESTHESIA
     Dosage: 2 ML, UNK
     Route: 065
  8. ALPRAZOLAM. [Concomitant]
     Active Substance: ALPRAZOLAM
     Indication: PRODUCT USED FOR UNKNOWN INDICATION
  9. OMEPRAZOLE. [Concomitant]
     Active Substance: OMEPRAZOLE
     Indication: PRODUCT USED FOR UNKNOWN INDICATION
  10. BETAMETHASONE. [Suspect]
     Active Substance: BETAMETHASONE
     Indication: ANAESTHESIA
     Dosage: 6 MG/ML SUSPENSION MIXED IN WITH 1ML OF PRESERVATIVE FREE NORMAL SALINE
     Route: 008
  11. FENOFIBRATE. [Concomitant]
     Active Substance: FENOFIBRATE
     Indication: PRODUCT USED FOR UNKNOWN INDICATION
  12. CALCIUM [Concomitant]
     Active Substance: CALCIUM
     Indication: PRODUCT USED FOR UNKNOWN INDICATION
     Route: 048

REACTIONS (5)
  - Sensory loss [Recovered/Resolved]
  - Extradural haematoma [Recovering/Resolving]
  - Injection site pain [Recovered/Resolved]
  - Paraesthesia [Recovered/Resolved]
  - Motor dysfunction [Recovered/Resolved]
